FAERS Safety Report 8635118 (Version 2)
Quarter: 2012Q4

REPORT INFORMATION
  Report Type: 
  Country: US (occurrence: US)
  Receive Date: 20120626
  Receipt Date: 20120904
  Transmission Date: 20130627
  Serious: Yes (Other)
  Sender: FDA-Public Use
  Company Number: US-BAYER-2012-060753

PATIENT
  Age: 20 Year
  Sex: Female
  Weight: 123 kg

DRUGS (2)
  1. MIRENA [Suspect]
     Indication: CONTRACEPTION
     Dosage: 20 mcg/24hr, CONT
     Route: 015
     Dates: start: 20110406
  2. CITALOPRAM HYDROBROMIDE [Concomitant]
     Dosage: 20 mg, UNK
     Route: 048

REACTIONS (6)
  - Device dislocation [None]
  - Product shape issue [None]
  - Abdominal pain [None]
  - Procedural pain [None]
  - Irritability [None]
  - Amenorrhoea [None]
